FAERS Safety Report 8773194 (Version 3)
Quarter: 2012Q4

REPORT INFORMATION
  Report Type: 
  Country: DO (occurrence: DO)
  Receive Date: 20120907
  Receipt Date: 20121207
  Transmission Date: 20130627
  Serious: Yes (Hospitalization, Other)
  Sender: FDA-Public Use
  Company Number: PHHO2012DO001186

PATIENT
  Age: 65 Year
  Sex: Male
  Weight: 81 kg

DRUGS (21)
  1. ACETYLSALICYLIC ACID [Suspect]
     Dosage: 81 mg, QD
     Dates: start: 20070406, end: 20111229
  2. BLINDED ALISKIREN [Suspect]
     Indication: CARDIAC FAILURE
     Dosage: Code not broken
     Route: 048
     Dates: start: 20110824, end: 20110907
  3. BLINDED ENALAPRIL [Suspect]
     Indication: CARDIAC FAILURE
     Dosage: Code not broken
     Route: 048
     Dates: start: 20110824, end: 20110907
  4. BLINDED NO TREATMENT RECEIVED [Suspect]
     Indication: CARDIAC FAILURE
     Dosage: Code not broken
     Route: 048
     Dates: start: 20110824, end: 20110907
  5. BLINDED ALISKIREN [Suspect]
     Dosage: Code not broken
     Route: 048
     Dates: start: 20110907, end: 20111230
  6. BLINDED ENALAPRIL [Suspect]
     Dosage: Code not broken
     Route: 048
     Dates: start: 20110907, end: 20111230
  7. BLINDED NO TREATMENT RECEIVED [Suspect]
     Dosage: Code not broken
     Route: 048
     Dates: start: 20110907, end: 20111230
  8. BLINDED ALISKIREN [Suspect]
     Dosage: Code not broken
     Route: 048
     Dates: start: 20120105
  9. BLINDED ENALAPRIL [Suspect]
     Dosage: Code not broken
     Route: 048
     Dates: start: 20120105
  10. BLINDED NO TREATMENT RECEIVED [Suspect]
     Dosage: Code not broken
     Route: 048
     Dates: start: 20120105
  11. CARVEDILOL [Concomitant]
     Indication: CARDIAC FAILURE
     Dosage: 6.25 mg, BID
     Dates: start: 20090908, end: 20111230
  12. CARVEDILOL [Concomitant]
     Dosage: 6.25 mg, BID
     Dates: start: 20120105
  13. FUROSEMIDE [Concomitant]
     Indication: CARDIAC FAILURE
     Dosage: 40 mg, QD
     Dates: start: 20090908, end: 20111230
  14. FUROSEMIDE [Concomitant]
     Dosage: 40 mg, QD
     Dates: start: 20120105
  15. CLOPIDOGREL [Concomitant]
     Indication: ANTIPLATELET THERAPY
     Dosage: 75 mg, QD
     Dates: start: 20070406, end: 20111229
  16. CLOPIDOGREL [Concomitant]
     Dosage: 75 mg, QD
     Dates: start: 20120424
  17. CIPROFIBRATE [Concomitant]
     Indication: DYSLIPIDAEMIA
     Dosage: 100 mg, QD
     Dates: start: 20120309
  18. SIMVASTATIN [Concomitant]
     Indication: PROPHYLAXIS
     Dosage: 20 mg, QD
     Dates: start: 20070406, end: 20111229
  19. SIMVASTATIN [Concomitant]
     Dosage: 20 mg, QD
     Dates: start: 20120105
  20. INSULIN [Concomitant]
     Indication: DIABETES MELLITUS
     Dosage: 60 U (34-26 ud), QD
     Route: 058
     Dates: start: 2003, end: 20111229
  21. INSULIN [Concomitant]
     Dosage: 60 U (34-26 ud), QD
     Route: 058
     Dates: start: 20120102

REACTIONS (3)
  - Gastrointestinal haemorrhage [Recovered/Resolved]
  - Duodenal ulcer [Recovered/Resolved]
  - Anaemia [Recovering/Resolving]
